FAERS Safety Report 9855794 (Version 1)
Quarter: 2014Q1

REPORT INFORMATION
  Report Type: Spontaneous
  Country: BR (occurrence: BR)
  Receive Date: 20140130
  Receipt Date: 20140130
  Transmission Date: 20141002
  Serious: Yes (Other)
  Sender: FDA-Public Use
  Company Number: PHHY2014BR008687

PATIENT
  Sex: Female
  Weight: 75 kg

DRUGS (2)
  1. MYFORTIC [Suspect]
     Indication: TRANSPLANT
     Dosage: 2 DF, DAILY
     Route: 048
  2. CARVEDILOL [Suspect]
     Indication: ORGAN FAILURE
     Dosage: 2 DF
     Route: 048

REACTIONS (7)
  - Cardiac disorder [Unknown]
  - Orthopnoea [Unknown]
  - Pulmonary oedema [Recovered/Resolved]
  - Suffocation feeling [Recovered/Resolved]
  - Chondropathy [Recovering/Resolving]
  - Generalised oedema [Unknown]
  - Dyspnoea [Recovered/Resolved]
